FAERS Safety Report 13966270 (Version 1)
Quarter: 2017Q3

REPORT INFORMATION
  Report Type: Spontaneous
  Country: AU (occurrence: AU)
  Receive Date: 20170913
  Receipt Date: 20170913
  Transmission Date: 20171128
  Serious: No
  Sender: FDA-Public Use
  Company Number: AU-009507513-1709AUS005683

PATIENT
  Sex: Female

DRUGS (1)
  1. ELOCON [Suspect]
     Active Substance: MOMETASONE FUROATE
     Indication: EAR DISORDER
     Dosage: USE ONCE DAILY INTO THE RIGHT EAR
     Route: 001

REACTIONS (3)
  - Product use in unapproved indication [Unknown]
  - Drug prescribing error [Unknown]
  - Incorrect route of drug administration [Unknown]
